FAERS Safety Report 5214448-9 (Version None)
Quarter: 2007Q1

REPORT INFORMATION
  Report Type: 
  Country: None (occurrence: None)
  Receive Date: 20070122
  Receipt Date: 20070122
  Transmission Date: 20070707
  Serious: Yes (Hospitalization)
  Sender: FDA-Public Use
  Company Number: None

PATIENT
  Age: 74 Year
  Sex: Male

DRUGS (11)
  1. CISPLATIN [Suspect]
     Indication: NON-SMALL CELL LUNG CANCER
     Dosage: 75MG/M2 Q 21 DAYS
     Dates: start: 20070109
  2. DOCETAXEL 160MG [Suspect]
     Indication: NON-SMALL CELL LUNG CANCER
     Dosage: 75MG/M2 Q21 DAYS
     Dates: start: 20070109
  3. ATENOLOL [Concomitant]
  4. HYDROCHLOROTHIAZIDE [Concomitant]
  5. ASPIRIN [Concomitant]
  6. PROSCAR [Concomitant]
  7. VASOTEC [Concomitant]
  8. SYNTHROID [Concomitant]
  9. SPIRIVA [Concomitant]
  10. ALBUTEROL [Concomitant]
  11. SIMVASTATIN [Concomitant]

REACTIONS (1)
  - BLOOD CREATINE INCREASED [None]
